FAERS Safety Report 4356867-9 (Version None)
Quarter: 2004Q2

REPORT INFORMATION
  Report Type: 
  Country: None (occurrence: None)
  Receive Date: 20040507
  Receipt Date: 20040421
  Transmission Date: 20050107
  Serious: Yes (Other)
  Sender: FDA-Public Use
  Company Number: S03-FRA-05336-01

PATIENT
  Age: 85 Year
  Sex: Female

DRUGS (8)
  1. EBIXA (MEMANTINE) (MEMANTINE) [Suspect]
     Dosage: 10 MG QD PO
     Route: 048
     Dates: start: 20030319
  2. FUROSEMIDE [Concomitant]
  3. AMILORIDE [Concomitant]
  4. DIGOXIN [Concomitant]
  5. ACENOCOUMAROL [Concomitant]
  6. RILMENIDINE [Concomitant]
  7. FRUMIL [Concomitant]
  8. BEPRIDIL HYDROCHLORIDE MONOHYDRATE [Concomitant]

REACTIONS (3)
  - DRUG INEFFECTIVE [None]
  - LUNG NEOPLASM MALIGNANT [None]
  - PLEURAL EFFUSION [None]
